FAERS Safety Report 5348318-2 (Version None)
Quarter: 2007Q2

REPORT INFORMATION
  Report Type: 
  Country: None (occurrence: None)
  Receive Date: 20070605
  Receipt Date: 20070521
  Transmission Date: 20071010
  Serious: Yes (Life-Threatening, Hospitalization)
  Sender: FDA-Public Use
  Company Number: DSA_29746_2007

PATIENT
  Sex: Male

DRUGS (3)
  1. TAVOR /00273201/ (TAVOR) [Suspect]
     Dosage: (100 DF 1X ORAL)
     Route: 048
     Dates: start: 20070407, end: 20070407
  2. TAMSULOSIN (TAMSULOSIN) 0.4 MG [Suspect]
     Dosage: (8 MG 1X ORAL)
     Route: 048
     Dates: start: 20070407, end: 20070407
  3. TREVILOR (TREVILOR) 75 MG (NOT SPECIFIED) [Suspect]
     Dosage: (1500 MG 1X ORAL)
     Route: 048
     Dates: start: 20070407, end: 20070407

REACTIONS (5)
  - BOWEL SOUNDS ABNORMAL [None]
  - HYPOTENSION [None]
  - MULTIPLE DRUG OVERDOSE INTENTIONAL [None]
  - SOMNOLENCE [None]
  - SUICIDE ATTEMPT [None]
